FAERS Safety Report 10883665 (Version 3)
Quarter: 2016Q2

REPORT INFORMATION
  Report Type: Report from Study
  Country: DE (occurrence: DE)
  Receive Date: 20150303
  Receipt Date: 20160628
  Transmission Date: 20160815
  Serious: Yes (Hospitalization, Other)
  Sender: FDA-Public Use
  Company Number: DE-ABBVIE-15K-062-1353134-00

PATIENT
  Age: 59 Year
  Sex: Female

DRUGS (2)
  1. NOVALGIN [Concomitant]
     Active Substance: METAMIZOLE SODIUM
     Indication: PRODUCT USED FOR UNKNOWN INDICATION
  2. HUMIRA [Suspect]
     Active Substance: ADALIMUMAB
     Indication: CROHN^S DISEASE
     Route: 058
     Dates: start: 20101218

REACTIONS (7)
  - Retinal disorder [Not Recovered/Not Resolved]
  - Macular oedema [Unknown]
  - Vision blurred [Unknown]
  - Visual acuity reduced [Unknown]
  - Retinal oedema [Not Recovered/Not Resolved]
  - Macular fibrosis [Unknown]
  - Retinal disorder [Not Recovered/Not Resolved]

NARRATIVE: CASE EVENT DATE: 201406
